FAERS Safety Report 15283955 (Version 1)
Quarter: 2018Q3

REPORT INFORMATION
  Report Type: Spontaneous
  Country: TW (occurrence: TW)
  Receive Date: 20180816
  Receipt Date: 20180816
  Transmission Date: 20181010
  Serious: Yes (Life-Threatening, Hospitalization, Other)
  Sender: FDA-Public Use
  Company Number: TW-PFIZER INC-2018329372

PATIENT
  Age: 41 Year
  Sex: Female
  Weight: 41 kg

DRUGS (2)
  1. AMIODARONE HCL [Suspect]
     Active Substance: AMIODARONE HYDROCHLORIDE
     Indication: SUPRAVENTRICULAR TACHYCARDIA
     Dosage: UNK
     Route: 065
     Dates: start: 201110, end: 201402
  2. CARBIMAZOLE [Suspect]
     Active Substance: CARBIMAZOLE
     Dosage: UNK
     Route: 065

REACTIONS (10)
  - Hypoxic-ischaemic encephalopathy [Unknown]
  - Diarrhoea [Unknown]
  - Hyperthyroidism [Unknown]
  - Speech disorder [Unknown]
  - Feeling hot [Unknown]
  - Cough [Unknown]
  - Dysphagia [Unknown]
  - Decreased appetite [Unknown]
  - Weight decreased [Unknown]
  - Vomiting [Unknown]

NARRATIVE: CASE EVENT DATE: 201402
